FAERS Safety Report 16826465 (Version 2)
Quarter: 2019Q4

REPORT INFORMATION
  Report Type: Spontaneous
  Country: FR (occurrence: FR)
  Receive Date: 20190919
  Receipt Date: 20191014
  Transmission Date: 20200122
  Serious: Yes (Hospitalization)
  Sender: FDA-Public Use
  Company Number: FR-PFIZER INC-2019397074

PATIENT
  Age: 72 Year
  Sex: Male
  Weight: 89 kg

DRUGS (13)
  1. LEVEMIR [Concomitant]
     Active Substance: INSULIN DETEMIR
     Indication: TYPE 2 DIABETES MELLITUS
     Dosage: 8 IU, 1X/DAY
     Route: 058
  2. ATEZOLIZUMAB. [Suspect]
     Active Substance: ATEZOLIZUMAB
     Indication: SMALL CELL LUNG CANCER
     Dosage: 1200 MG, 1X/DAY
     Route: 042
     Dates: start: 20190703, end: 20190703
  3. INDAPAMIDE. [Concomitant]
     Active Substance: INDAPAMIDE
     Indication: HYPERTENSION
     Dosage: 1.5 MG, 1X/DAY
     Route: 048
  4. TAMSULOSIN [Concomitant]
     Active Substance: TAMSULOSIN
     Indication: BENIGN PROSTATIC HYPERPLASIA
     Dosage: 0.4 MG, 1X/DAY
     Route: 048
  5. DALTEPARIN SODIUM [Concomitant]
     Active Substance: DALTEPARIN SODIUM
     Indication: PROPHYLAXIS
     Dosage: 5000 IU, 1X/DAY
     Route: 058
     Dates: start: 20190706, end: 20190711
  6. NOVORAPID [Concomitant]
     Active Substance: INSULIN ASPART
     Indication: TYPE 2 DIABETES MELLITUS
     Dosage: 3 UNK, DAILY
     Route: 058
  7. ETOPOSIDE. [Suspect]
     Active Substance: ETOPOSIDE
     Indication: SMALL CELL LUNG CANCER
     Dosage: 200 MG, 1X/DAY
     Route: 042
     Dates: start: 20190703, end: 20190705
  8. PERINDOPRIL [Concomitant]
     Active Substance: PERINDOPRIL
     Indication: HYPERTENSION
     Dosage: 4 MG, 1X/DAY
     Route: 048
  9. METOCLOPRAMIDE. [Concomitant]
     Active Substance: METOCLOPRAMIDE
     Indication: NAUSEA
     Dosage: 1 DF, EVERY 8 HOURS
     Route: 048
  10. CARBOPLATIN. [Suspect]
     Active Substance: CARBOPLATIN
     Indication: SMALL CELL LUNG CANCER
     Dosage: 790 MG, 1X/DAY
     Route: 042
     Dates: start: 20190703, end: 20190703
  11. AUGMENTIN [Concomitant]
     Active Substance: AMOXICILLIN\CLAVULANATE POTASSIUM
     Indication: INFECTION
     Dosage: 3 DF, 1X/DAY
     Route: 048
     Dates: start: 20190710, end: 20190711
  12. LANSOPRAZOLE. [Concomitant]
     Active Substance: LANSOPRAZOLE
     Dosage: 30 MG, 1X/DAY
     Route: 048
  13. ATORVASTATINE [ATORVASTATIN] [Concomitant]
     Active Substance: ATORVASTATIN
     Indication: HYPERCHOLESTEROLAEMIA
     Dosage: 10 MG, 1X/DAY
     Route: 048
     Dates: start: 20190703

REACTIONS (4)
  - Leukopenia [Recovered/Resolved]
  - Septic shock [Recovered/Resolved]
  - Thrombocytopenia [Recovered/Resolved]
  - Anaemia [Not Recovered/Not Resolved]

NARRATIVE: CASE EVENT DATE: 20190711
